FAERS Safety Report 18188146 (Version 1)
Quarter: 2020Q3

REPORT INFORMATION
  Report Type: Report from Study
  Country: CA (occurrence: CA)
  Receive Date: 20200824
  Receipt Date: 20200824
  Transmission Date: 20201103
  Serious: Yes (Hospitalization)
  Sender: FDA-Public Use
  Company Number: CA-UCBSA-2020032494

PATIENT
  Age: 50 Year
  Sex: Female

DRUGS (1)
  1. CERTOLIZUMAB PEGOL AUTOCLICKS [Suspect]
     Active Substance: CERTOLIZUMAB PEGOL
     Indication: RHEUMATOID ARTHRITIS
     Dosage: 400 MILLIGRAM, EV 4 WEEKS
     Route: 058
     Dates: start: 20191106, end: 20200605

REACTIONS (5)
  - Therapy cessation [Unknown]
  - Liver disorder [Unknown]
  - White blood cell count increased [Unknown]
  - Gallbladder disorder [Unknown]
  - Insurance issue [Unknown]

NARRATIVE: CASE EVENT DATE: 20200605
